FAERS Safety Report 6664640-1 (Version None)
Quarter: 2010Q2

REPORT INFORMATION
  Report Type: 
  Country: None (occurrence: None)
  Receive Date: 20100401
  Receipt Date: 20100323
  Transmission Date: 20101027
  Serious: Yes (Other)
  Sender: FDA-Public Use
  Company Number: PHHY2010JP18415

PATIENT
  Age: 34 Year
  Sex: Male

DRUGS (2)
  1. NEORAL [Suspect]
     Indication: PSORIASIS
     Route: 048
  2. RHEUMATREX [Concomitant]
     Indication: PSORIASIS

REACTIONS (2)
  - INFERTILITY [None]
  - SPERMATOZOA PROGRESSIVE MOTILITY DECREASED [None]
